FAERS Safety Report 18238375 (Version 1)
Quarter: 2020Q3

REPORT INFORMATION
  Report Type: Spontaneous
  Country: FR (occurrence: FR)
  Receive Date: 20200907
  Receipt Date: 20200907
  Transmission Date: 20201103
  Serious: Yes (Other)
  Sender: FDA-Public Use
  Company Number: FR-TEVA-2020-FR-1823623

PATIENT
  Age: 48 Year
  Sex: Female
  Weight: 39 kg

DRUGS (7)
  1. CERIS 20 MG, COMPRIME ENROBE [Concomitant]
     Active Substance: TROSPIUM CHLORIDE
  2. DIAZEPAM. [Concomitant]
     Active Substance: DIAZEPAM
  3. TETMODIS 25 MG, COMPRIME SECABLE [Concomitant]
  4. SERTRALINE (CHLORHYDRATE DE) [Concomitant]
     Active Substance: SERTRALINE HYDROCHLORIDE
  5. NICOPATCHLIB 14 MG/24 HEURES, DISPOSITIF TRANSDERMIQUE [Concomitant]
  6. CLOZAPINE. [Suspect]
     Active Substance: CLOZAPINE
     Indication: SCHIZOPHRENIA
     Dosage: UNIT DOSE : 400 MILLIGRAM
     Route: 048
  7. BUPRENORPHINE. [Concomitant]
     Active Substance: BUPRENORPHINE

REACTIONS (1)
  - Hypogammaglobulinaemia [Not Recovered/Not Resolved]

NARRATIVE: CASE EVENT DATE: 20200331
